FAERS Safety Report 8895990 (Version 2)
Quarter: 2012Q4

REPORT INFORMATION
  Report Type: 
  Country: US (occurrence: US)
  Receive Date: 20121108
  Receipt Date: 20121205
  Transmission Date: 20130627
  Serious: Yes (Death)
  Sender: FDA-Public Use
  Company Number: PHEH2012US021958

PATIENT
  Age: 76 Year
  Sex: Female

DRUGS (3)
  1. AFINITOR [Suspect]
     Indication: METASTATIC CARCINOID TUMOUR
     Dosage: 10 mg, QD
     Route: 048
  2. SANDOSTATIN [Suspect]
     Dosage: UNK
     Route: 048
  3. DIOVAN [Concomitant]

REACTIONS (11)
  - Death [Fatal]
  - Discomfort [Not Recovered/Not Resolved]
  - Oedema peripheral [Not Recovered/Not Resolved]
  - Gait disturbance [Not Recovered/Not Resolved]
  - Decreased appetite [Not Recovered/Not Resolved]
  - Weight decreased [Not Recovered/Not Resolved]
  - Anaemia [Not Recovered/Not Resolved]
  - Fatigue [Not Recovered/Not Resolved]
  - Nausea [Not Recovered/Not Resolved]
  - Flushing [Not Recovered/Not Resolved]
  - Diarrhoea [Not Recovered/Not Resolved]
